FAERS Safety Report 5388541-4 (Version None)
Quarter: 2007Q3

REPORT INFORMATION
  Report Type: 
  Country: None (occurrence: None)
  Receive Date: 20070711
  Receipt Date: 20070702
  Transmission Date: 20080115
  Serious: Yes (Congenital Anomaly)
  Sender: FDA-Public Use
  Company Number: 2007AL002661

PATIENT
  Age: 25 Year
  Sex: Female

DRUGS (1)
  1. METFORMIN HCL [Suspect]
     Indication: POLYCYSTIC OVARIES
     Dosage: 500 MG; BID; PO
     Route: 048
     Dates: start: 20060129, end: 20070126

REACTIONS (13)
  - ABORTION INDUCED [None]
  - ANAL ATRESIA [None]
  - CONGENITAL ANOMALY [None]
  - CONGENITAL GENITAL MALFORMATION [None]
  - DRUG EXPOSURE DURING PREGNANCY [None]
  - FOETAL CYSTIC HYGROMA [None]
  - FOETAL MALFORMATION [None]
  - KIDNEY MALFORMATION [None]
  - LOW SET EARS [None]
  - LOWER LIMB DEFORMITY [None]
  - PREGNANCY [None]
  - UMBILICAL CORD ABNORMALITY [None]
  - URINARY TRACT MALFORMATION [None]
